FAERS Safety Report 5810392-4 (Version None)
Quarter: 2008Q3

REPORT INFORMATION
  Report Type: 
  Country: None (occurrence: None)
  Receive Date: 20080715
  Receipt Date: 20080703
  Transmission Date: 20090109
  Serious: Yes (Other)
  Sender: FDA-Public Use
  Company Number: RU-ROCHE-538773

PATIENT
  Sex: Male
  Weight: 103 kg

DRUGS (2)
  1. PEGASYS [Suspect]
     Dosage: DOSAGE FORM VIAL.
     Route: 058
     Dates: start: 20070904, end: 20071225
  2. RIBAVIRIN [Suspect]
     Route: 048
     Dates: start: 20070904, end: 20071225

REACTIONS (3)
  - ALVEOLITIS FIBROSING [None]
  - INFLUENZA [None]
  - PNEUMONIA [None]
